FAERS Safety Report 5216539-5 (Version None)
Quarter: 2007Q1

REPORT INFORMATION
  Report Type: 
  Country: None (occurrence: None)
  Receive Date: 20070118
  Receipt Date: 20070103
  Transmission Date: 20070707
  Serious: Yes (Hospitalization)
  Sender: FDA-Public Use
  Company Number: 2005EU000497

PATIENT
  Age: 24 Year
  Sex: Female
  Weight: 54 kg

DRUGS (2)
  1. PROTOPIC [Suspect]
     Indication: DERMATITIS ATOPIC
     Dosage: SEE IMAGE
     Route: 061
     Dates: start: 20040812, end: 20040905
  2. PROTOPIC [Suspect]
     Indication: DERMATITIS ATOPIC
     Dosage: SEE IMAGE
     Route: 061
     Dates: start: 20041009, end: 20041104

REACTIONS (8)
  - ACANTHOSIS [None]
  - EYELID OEDEMA [None]
  - INFLAMMATION [None]
  - PAIN [None]
  - RASH PAPULAR [None]
  - STAPHYLOCOCCAL INFECTION [None]
  - SUPERINFECTION [None]
  - TRICHOPHYTON INFECTION [None]
